FAERS Safety Report 26096229 (Version 1)
Quarter: 2025Q4

REPORT INFORMATION
  Report Type: Spontaneous
  Country: EU (occurrence: EU)
  Receive Date: 20251127
  Receipt Date: 20251127
  Transmission Date: 20260118
  Serious: Yes (Other)
  Sender: BAXTER
  Company Number: None

PATIENT
  Age: 56 Year
  Sex: Male

DRUGS (2)
  1. BENDAMUSTINE [Suspect]
     Active Substance: BENDAMUSTINE
     Indication: Cutaneous T-cell lymphoma
     Dosage: 160 MG, 2 (CYCLICAL)
     Route: 042
     Dates: start: 20230607, end: 20230929
  2. ADCETRIS [Suspect]
     Active Substance: BRENTUXIMAB VEDOTIN
     Indication: Cutaneous T-cell lymphoma
     Dosage: 130 MG, 1 (CYCLICAL), EVERY 3 TO 4 WEEKS (POWDER FOR SOLUTION TO BE DILUTED FOR INFUSION)
     Route: 042
     Dates: start: 20230607, end: 20251027

REACTIONS (1)
  - Peripheral sensorimotor neuropathy [Not Recovered/Not Resolved]
